FAERS Safety Report 21426205 (Version 5)
Quarter: 2023Q2

REPORT INFORMATION
  Report Type: Spontaneous
  Country: US (occurrence: US)
  Receive Date: 20221008
  Receipt Date: 20230407
  Transmission Date: 20230721
  Serious: No
  Sender: FDA-Public Use
  Company Number: US-NOVARTISTESTPH-NVSC2022US224404

PATIENT
  Sex: Male

DRUGS (4)
  1. VOTRIENT [Suspect]
     Active Substance: PAZOPANIB HYDROCHLORIDE
     Indication: Bone neoplasm
     Dosage: 400 MG, QD
     Route: 048
     Dates: start: 20220921
  2. VOTRIENT [Suspect]
     Active Substance: PAZOPANIB HYDROCHLORIDE
     Indication: Soft tissue neoplasm
  3. VOTRIENT [Suspect]
     Active Substance: PAZOPANIB HYDROCHLORIDE
     Indication: Neoplasm skin
  4. VOTRIENT [Suspect]
     Active Substance: PAZOPANIB HYDROCHLORIDE
     Indication: Bone cancer

REACTIONS (7)
  - Oral pain [Unknown]
  - Erythema [Unknown]
  - Vitiligo [Unknown]
  - Mouth ulceration [Unknown]
  - Dysphagia [Unknown]
  - Diarrhoea [Unknown]
  - Nausea [Unknown]
